FAERS Safety Report 6911607-1 (Version None)
Quarter: 2010Q3

REPORT INFORMATION
  Report Type: 
  Country: None (occurrence: None)
  Receive Date: 20100806
  Receipt Date: 20100730
  Transmission Date: 20110219
  Serious: Yes (Hospitalization)
  Sender: FDA-Public Use
  Company Number: FR-KINGPHARMUSA00001-K201000964

PATIENT
  Age: 84 Year
  Sex: Female

DRUGS (5)
  1. ALTACE [Suspect]
     Indication: HYPERTENSION
     Dosage: UNK
     Route: 048
     Dates: end: 20090824
  2. ROSUVASTATIN CALCIUM [Concomitant]
     Dosage: 5 MG, QD
  3. ALLOPURINOL [Concomitant]
     Indication: HYPERURICAEMIA
     Dosage: UNK
  4. CORDARONE [Concomitant]
     Indication: ATRIAL FIBRILLATION
     Dosage: 200 MG, QD
  5. PREVISCAN [Concomitant]
     Dosage: 20 MG, QD

REACTIONS (4)
  - BLOOD PRESSURE SYSTOLIC DECREASED [None]
  - HYPONATRAEMIA [None]
  - MALAISE [None]
  - TROPONIN INCREASED [None]
